FAERS Safety Report 11234481 (Version 1)
Quarter: 2015Q3

REPORT INFORMATION
  Report Type: Spontaneous
  Country: IT (occurrence: IT)
  Receive Date: 20150702
  Receipt Date: 20150702
  Transmission Date: 20151125
  Serious: Yes (Other)
  Sender: FDA-Public Use
  Company Number: IT-WATSON-2015-12801

PATIENT
  Age: 21 Year
  Sex: Female

DRUGS (4)
  1. TOPIRAMATE (UNKNOWN) [Suspect]
     Active Substance: TOPIRAMATE
     Indication: MIGRAINE WITHOUT AURA
     Dosage: 25 MG, DAILY
     Route: 065
  2. TOPIRAMATE (UNKNOWN) [Interacting]
     Active Substance: TOPIRAMATE
     Dosage: 50 MG, BID
     Route: 065
  3. LEVONORGESTREL-ETHINYLESTRADIOL (UNKNOWN) [Interacting]
     Active Substance: ETHINYL ESTRADIOL\LEVONORGESTREL
     Indication: ACNE
     Dosage: UNK
     Route: 048
  4. LEVONORGESTREL-ETHINYLESTRADIOL (UNKNOWN) [Interacting]
     Active Substance: ETHINYL ESTRADIOL\LEVONORGESTREL
     Indication: MENSTRUAL DISORDER

REACTIONS (3)
  - Drug interaction [Unknown]
  - Metrorrhagia [Unknown]
  - Ovarian cyst [Unknown]
